FAERS Safety Report 10542315 (Version 1)
Quarter: 2014Q4

REPORT INFORMATION
  Report Type: Spontaneous
  Country: US (occurrence: None)
  Receive Date: 20141010
  Receipt Date: 20141010
  Transmission Date: 20150529
  Serious: Yes (Other)
  Sender: FDA-Public Use
  Company Number: 163-POMAL-14054766

PATIENT
  Age: 59 Year
  Sex: Female
  Weight: 70.3 kg

DRUGS (15)
  1. DEXAMETHASONE. [Concomitant]
     Active Substance: DEXAMETHASONE
  2. ONDANSETRON [Concomitant]
     Active Substance: ONDANSETRON
  3. ACYCLOVIR(ACICLOVIR) [Concomitant]
  4. PROCHLORPERAZINE(PROCHLORPERAZINE) [Concomitant]
  5. OXYCONTIN(OXYCODONE HYDROCHLORIDE) [Concomitant]
  6. ATENOLOL. [Concomitant]
     Active Substance: ATENOLOL
  7. POTASSIUM CHLORIDE. [Concomitant]
     Active Substance: POTASSIUM CHLORIDE
  8. OXYCODONE/ACETAMINOPHEN(OXYCOCET) [Concomitant]
  9. MICROGESTIN(ANOVLAR) [Concomitant]
  10. VALTREXA(VALACICLOVIR HYDROCHLORIDE) [Concomitant]
  11. CIPROFLOXACIN. [Concomitant]
     Active Substance: CIPROFLOXACIN
  12. ATORVASTATIN(ATORVASTATIN) [Concomitant]
  13. BENICAR HCT [Concomitant]
     Active Substance: HYDROCHLOROTHIAZIDE\OLMESARTAN MEDOXOMIL
  14. POMALYST [Suspect]
     Active Substance: POMALIDOMIDE
     Indication: PLASMA CELL MYELOMA
     Dosage: 4 MG, 21 IN 28 D, PO
     Route: 048
     Dates: start: 20140129
  15. AMLODIPINE BESYLATE(AMLODIPINE BESILATE) [Concomitant]

REACTIONS (1)
  - Deep vein thrombosis [None]

NARRATIVE: CASE EVENT DATE: 20140521
